FAERS Safety Report 9678018 (Version 2)
Quarter: 2013Q4

REPORT INFORMATION
  Report Type: Spontaneous
  Country: US (occurrence: US)
  Receive Date: 20131108
  Receipt Date: 20131126
  Transmission Date: 20140711
  Serious: No
  Sender: FDA-Public Use
  Company Number: US-009507513-1311USA002881

PATIENT
  Sex: 0

DRUGS (1)
  1. JANUMET XR [Suspect]
     Indication: DIABETES MELLITUS
     Dosage: 50/1000, BID
     Route: 048

REACTIONS (2)
  - Blood glucose increased [Recovered/Resolved]
  - Inappropriate schedule of drug administration [Unknown]
